FAERS Safety Report 9496481 (Version 1)
Quarter: 2013Q3

REPORT INFORMATION
  Report Type: Spontaneous
  Country: IN (occurrence: IN)
  Receive Date: 20130904
  Receipt Date: 20130904
  Transmission Date: 20140515
  Serious: Yes (Hospitalization)
  Sender: FDA-Public Use
  Company Number: IN-ASTRAZENECA-2013SE66546

PATIENT
  Age: 20089 Day
  Sex: Male

DRUGS (5)
  1. BRILINTA [Suspect]
     Indication: ACUTE CORONARY SYNDROME
     Dosage: 8 AM STARTED NEXT DAY 8 PM STOPPED
     Route: 048
     Dates: start: 20130813, end: 20130814
  2. ECOSPRIN [Concomitant]
     Indication: ACUTE CORONARY SYNDROME
     Route: 048
     Dates: start: 20130813, end: 20130828
  3. ECOSPRIN [Concomitant]
     Indication: ACUTE CORONARY SYNDROME
     Route: 048
     Dates: start: 20130828
  4. AZTOR [Concomitant]
     Indication: ACUTE CORONARY SYNDROME
     Dosage: UNKNOWN DOSE, AT NIGHT
  5. LMWX [Concomitant]
     Indication: ACUTE CORONARY SYNDROME
     Route: 042
     Dates: start: 20130813

REACTIONS (2)
  - Local swelling [Recovered/Resolved]
  - Gastrointestinal haemorrhage [Recovered/Resolved]
